FAERS Safety Report 7767493-3 (Version None)
Quarter: 2011Q3

REPORT INFORMATION
  Report Type: 
  Country: None (occurrence: None)
  Receive Date: 20110922
  Receipt Date: 20100913
  Transmission Date: 20111222
  Serious: No
  Sender: FDA-Public Use
  Company Number: US-BAYER-201033524NA

PATIENT
  Age: 51 Year
  Sex: Female

DRUGS (2)
  1. EXTAVIA [Suspect]
     Dosage: UNK
     Dates: start: 20100101
  2. BETASERON [Suspect]
     Indication: SECONDARY PROGRESSIVE MULTIPLE SCLEROSIS
     Dosage: 8 MIU, QOD
     Route: 058
     Dates: start: 20080812, end: 20100101

REACTIONS (1)
  - PAIN [None]
